FAERS Safety Report 6171682-1 (Version None)
Quarter: 2009Q2

REPORT INFORMATION
  Report Type: 
  Country: None (occurrence: None)
  Receive Date: 20090429
  Receipt Date: 20090420
  Transmission Date: 20091009
  Serious: Yes (Disabling)
  Sender: FDA-Public Use
  Company Number: A0765692A

PATIENT
  Age: 70 Year
  Sex: Female
  Weight: 50 kg

DRUGS (11)
  1. REQUIP [Suspect]
     Indication: RESTLESS LEGS SYNDROME
     Dosage: 1MG THREE TIMES PER DAY
     Route: 048
     Dates: start: 20080101, end: 20081101
  2. REQUIP XL [Suspect]
     Indication: RESTLESS LEGS SYNDROME
     Route: 048
  3. ROPINIROLE [Suspect]
     Indication: RESTLESS LEGS SYNDROME
     Route: 048
  4. MIRAPEX [Suspect]
     Indication: DRUG USE FOR UNKNOWN INDICATION
  5. LYRICA [Suspect]
     Indication: DRUG USE FOR UNKNOWN INDICATION
  6. ADVAIR HFA [Concomitant]
  7. PROZAC [Concomitant]
     Dosage: 60U PER DAY
  8. PERCOCET [Concomitant]
  9. FENTANYL [Concomitant]
  10. PREMARIN [Concomitant]
  11. FOLIC ACID [Concomitant]

REACTIONS (6)
  - DIZZINESS [None]
  - DRUG INTOLERANCE [None]
  - FALL [None]
  - FEELING ABNORMAL [None]
  - SUDDEN ONSET OF SLEEP [None]
  - SWELLING [None]
